FAERS Safety Report 12800551 (Version 1)
Quarter: 2016Q3

REPORT INFORMATION
  Report Type: Report from Study
  Country: AT (occurrence: AT)
  Receive Date: 20160930
  Receipt Date: 20160930
  Transmission Date: 20161109
  Serious: Yes (Death, Hospitalization, Other)
  Sender: FDA-Public Use
  Company Number: AT-ABBVIE-16P-009-1600578-00

PATIENT
  Age: 68 Year
  Sex: Female
  Weight: 84 kg

DRUGS (12)
  1. MONODEX [Concomitant]
     Active Substance: DEXAMETHASONE
     Indication: UVEITIS
     Route: 061
     Dates: start: 20150224
  2. ERYCYTOL [Concomitant]
     Indication: VITAMIN B12 DEFICIENCY
     Dosage: EVERY 3 MONTHS, ROUTE- IM
     Dates: start: 2014
  3. MAGNOSOLV [Concomitant]
     Indication: MAGNESIUM DEFICIENCY
     Dosage: 1 PACK
     Route: 048
     Dates: start: 2014
  4. HUMIRA [Suspect]
     Active Substance: ADALIMUMAB
     Indication: UVEITIS
     Route: 058
     Dates: start: 20140715, end: 20160224
  5. ERYCYTOL [Concomitant]
     Indication: PROPHYLAXIS
  6. MAXI-KALZ VIT D3 [Concomitant]
     Active Substance: CALCIUM CARBONATE\CHOLECALCIFEROL
     Indication: OSTEOPOROSIS
     Route: 048
     Dates: start: 2014
  7. MAGNOSOLV [Concomitant]
     Indication: PROPHYLAXIS
  8. TEBOFORTAN [Concomitant]
     Active Substance: GINKGO
     Indication: CARDIOVASCULAR DISORDER
     Route: 048
     Dates: start: 2014
  9. CONCOR [Concomitant]
     Active Substance: BISOPROLOL FUMARATE
     Indication: HYPERTENSION
     Route: 048
     Dates: start: 2010
  10. ACECOMB [Concomitant]
     Active Substance: HYDROCHLOROTHIAZIDE\LISINOPRIL
     Indication: HYPERTENSION
     Route: 048
     Dates: start: 2010
  11. ACEMIN [Concomitant]
     Active Substance: LISINOPRIL
     Indication: HYPERTENSION
     Route: 048
     Dates: start: 2010
  12. PROLIA [Concomitant]
     Active Substance: DENOSUMAB
     Indication: OSTEOPOROSIS
     Dosage: EVERY 6 MONTHS
     Route: 042
     Dates: start: 2014

REACTIONS (1)
  - Brain abscess [Fatal]

NARRATIVE: CASE EVENT DATE: 20160304
